FAERS Safety Report 5813668-X (Version None)
Quarter: 2008Q3

REPORT INFORMATION
  Report Type: 
  Country: None (occurrence: None)
  Receive Date: 20080717
  Receipt Date: 20080714
  Transmission Date: 20090109
  Serious: Yes (Other)
  Sender: FDA-Public Use
  Company Number: B0527372A

PATIENT
  Age: 66 Year
  Sex: Female
  Weight: 65.3 kg

DRUGS (6)
  1. LAPATINIB [Suspect]
     Indication: BREAST CANCER
     Dosage: 1500MG PER DAY
     Route: 048
     Dates: start: 20080603
  2. PACLITAXEL [Suspect]
     Indication: BREAST CANCER
     Dosage: 80MGM2 PER DAY
     Route: 042
     Dates: start: 20080603
  3. ACOVIL [Suspect]
     Indication: HYPERTENSION
     Route: 048
  4. ALPRAZOLAM [Suspect]
     Route: 048
  5. CITALOPRAM HYDROBROMIDE [Suspect]
     Route: 048
  6. ORFIDAL [Suspect]
     Indication: INSOMNIA
     Route: 048

REACTIONS (1)
  - ALANINE AMINOTRANSFERASE INCREASED [None]
